FAERS Safety Report 23744479 (Version 2)
Quarter: 2024Q2

REPORT INFORMATION
  Report Type: Report from Study
  Country: US (occurrence: US)
  Receive Date: 20240415
  Receipt Date: 20240418
  Transmission Date: 20240715
  Serious: Yes (Death)
  Sender: FDA-Public Use
  Company Number: US-OTSUKA-2024_010696

PATIENT
  Age: 62 Year
  Sex: Female

DRUGS (1)
  1. DEXTROMETHORPHAN HYDROBROMIDE\QUINIDINE SULFATE [Suspect]
     Active Substance: DEXTROMETHORPHAN HYDROBROMIDE\QUINIDINE SULFATE
     Indication: Product used for unknown indication
     Dosage: 4 CAPSULES (20-10MG) FOR 2 DAYS
     Route: 065

REACTIONS (1)
  - Death [Fatal]

NARRATIVE: CASE EVENT DATE: 20230520
